FAERS Safety Report 10475482 (Version 1)
Quarter: 2014Q3

REPORT INFORMATION
  Report Type: Spontaneous
  Country: US (occurrence: None)
  Receive Date: 20140924
  Receipt Date: 20140924
  Transmission Date: 20150326
  Serious: Yes (Hospitalization)
  Sender: FDA-Public Use
  Company Number: None

PATIENT
  Age: 67 Year
  Sex: Male
  Weight: 118.2 kg

DRUGS (13)
  1. METFORMIN [Concomitant]
     Active Substance: METFORMIN HYDROCHLORIDE
  2. PLAVIX [Suspect]
     Active Substance: CLOPIDOGREL BISULFATE
     Indication: STENT PLACEMENT
     Dosage: CHRONIC
     Route: 048
  3. ZYLOPRIM [Concomitant]
     Active Substance: ALLOPURINOL
  4. EUCERIN CR [Concomitant]
  5. NATEGLINIDE. [Concomitant]
     Active Substance: NATEGLINIDE
  6. METOPROOL XL [Concomitant]
  7. PREDNISONE. [Concomitant]
     Active Substance: PREDNISONE
  8. K+ [Concomitant]
     Active Substance: POTASSIUM CATION
  9. GLUC [Concomitant]
  10. COUMADIN [Suspect]
     Active Substance: WARFARIN SODIUM
     Indication: ATRIAL FIBRILLATION
     Dosage: CHRONIC
     Route: 048
  11. PRAVASTATIN [Concomitant]
     Active Substance: PRAVASTATIN\PRAVASTATIN SODIUM
  12. MVI [Concomitant]
     Active Substance: VITAMINS
  13. PERCOCET [Concomitant]
     Active Substance: ACETAMINOPHEN\OXYCODONE HYDROCHLORIDE

REACTIONS (5)
  - International normalised ratio increased [None]
  - Renal haematoma [None]
  - Anaemia [None]
  - Arthralgia [None]
  - Abdominal pain [None]

NARRATIVE: CASE EVENT DATE: 20140321
